FAERS Safety Report 6615523-4 (Version None)
Quarter: 2010Q1

REPORT INFORMATION
  Report Type: 
  Country: None (occurrence: None)
  Receive Date: 20100305
  Receipt Date: 20100201
  Transmission Date: 20100710
  Serious: No
  Sender: FDA-Public Use
  Company Number: US-BAYER-201011573BCC

PATIENT
  Age: 33 Year
  Sex: Female
  Weight: 109 kg

DRUGS (1)
  1. ALEVE [Suspect]
     Indication: PREMENSTRUAL SYNDROME
     Dosage: TOTAL DAILY DOSE: 220 MG  UNIT DOSE: 220 MG
     Route: 048

REACTIONS (2)
  - EYE SWELLING [None]
  - LIP SWELLING [None]
